FAERS Safety Report 16762802 (Version 2)
Quarter: 2019Q3

REPORT INFORMATION
  Report Type: Report from Study
  Country: PT (occurrence: PT)
  Receive Date: 20190901
  Receipt Date: 20190923
  Transmission Date: 20191005
  Serious: Yes (Life-Threatening, Hospitalization)
  Sender: FDA-Public Use
  Company Number: PT-CELLTRION INC.-2019PT024066

PATIENT

DRUGS (28)
  1. REMSIMA [Suspect]
     Active Substance: INFLIXIMAB
     Dosage: 450 MG (WEIGHT:90 )
     Route: 042
     Dates: start: 20170516, end: 20170516
  2. REMSIMA [Suspect]
     Active Substance: INFLIXIMAB
     Dosage: 450 MG (WEIGHT: 90)
     Route: 042
     Dates: start: 20190614, end: 20190614
  3. ALPRAZOLAM. [Concomitant]
     Active Substance: ALPRAZOLAM
     Indication: ANXIETY
     Dosage: 0.5 MG AS NEEDED
     Route: 048
     Dates: start: 20180511
  4. AMLODIPINE [Concomitant]
     Active Substance: AMLODIPINE BESYLATE
     Indication: HYPERTENSION
     Dosage: 10 MG ONCE A DAY
     Route: 048
     Dates: start: 201708
  5. REMSIMA [Suspect]
     Active Substance: INFLIXIMAB
     Dosage: 450 MG (WEIGHT:90)
     Route: 042
     Dates: start: 20180402, end: 20180402
  6. REMSIMA [Suspect]
     Active Substance: INFLIXIMAB
     Dosage: 440 MG (WEIGHT:88)
     Route: 042
     Dates: start: 20181003, end: 20181003
  7. NAPROXEN. [Concomitant]
     Active Substance: NAPROXEN
     Indication: ARTHRALGIA
     Dosage: 500 MG AS NEEDED
     Route: 048
     Dates: start: 20180511
  8. REMSIMA [Suspect]
     Active Substance: INFLIXIMAB
     Dosage: 450 MG (WEIGHT: 90)
     Route: 042
     Dates: start: 20181114, end: 20181114
  9. REMSIMA [Suspect]
     Active Substance: INFLIXIMAB
     Dosage: 460 MG  (WEIGHT: 92)
     Route: 042
     Dates: start: 20190503, end: 20190503
  10. METOCLOPRAMIDE. [Concomitant]
     Active Substance: METOCLOPRAMIDE
     Indication: INFLAMMATORY BOWEL DISEASE
     Dosage: 10 MG, FOUR TIMES A DAY
     Route: 048
     Dates: start: 201712
  11. REMSIMA [Suspect]
     Active Substance: INFLIXIMAB
     Dosage: 450 MG (WEIGHT: 90)
     Route: 042
     Dates: start: 20180215, end: 20180215
  12. REMSIMA [Suspect]
     Active Substance: INFLIXIMAB
     Dosage: 435 MG (WEIGHT:87)
     Route: 042
     Dates: start: 20190322, end: 20190322
  13. REMSIMA [Suspect]
     Active Substance: INFLIXIMAB
     Dosage: 450 MG (WEIGHT: 90)
     Route: 042
     Dates: start: 20170831, end: 20170831
  14. REMSIMA [Suspect]
     Active Substance: INFLIXIMAB
     Dosage: 375 MG (WEIGHT:75)
     Route: 042
     Dates: start: 20171011, end: 20171011
  15. REMSIMA [Suspect]
     Active Substance: INFLIXIMAB
     Dosage: 450 MG (WEIGHT: 90)
     Route: 042
     Dates: start: 20181228, end: 20181228
  16. REMSIMA [Suspect]
     Active Substance: INFLIXIMAB
     Dosage: 450 MG (WEIGHT:90)
     Route: 042
     Dates: start: 20171124, end: 20171124
  17. REMSIMA [Suspect]
     Active Substance: INFLIXIMAB
     Dosage: 450 MG (WEIGHT: 90)
     Route: 042
     Dates: start: 20180105, end: 20180105
  18. REMSIMA [Suspect]
     Active Substance: INFLIXIMAB
     Dosage: 450 MG (WEIGHT: 90)
     Route: 042
     Dates: start: 20190208, end: 20190208
  19. BETAHISTINE [Concomitant]
     Active Substance: BETAHISTINE
     Indication: COGAN^S SYNDROME
     Dosage: 24 MG, TWICE A DAY
     Route: 048
     Dates: start: 20171205
  20. REMSIMA [Suspect]
     Active Substance: INFLIXIMAB
     Dosage: 460 MG (WEIGHT: 92)
     Route: 042
     Dates: start: 20170321, end: 20170321
  21. REMSIMA [Suspect]
     Active Substance: INFLIXIMAB
     Dosage: 440 MG (WEIGHT:88)
     Route: 042
     Dates: start: 20170711, end: 20170711
  22. REMSIMA [Suspect]
     Active Substance: INFLIXIMAB
     Dosage: 450 MG (WEIGHT:90)
     Route: 042
     Dates: start: 20180627, end: 20180627
  23. REMSIMA [Suspect]
     Active Substance: INFLIXIMAB
     Dosage: 460 MG (WEIGHT: 92)
     Route: 042
     Dates: start: 20180822, end: 20180822
  24. INSULIN [Concomitant]
     Active Substance: INSULIN NOS
     Indication: DIABETES MELLITUS
     Dosage: UNK
     Route: 042
     Dates: start: 2018
  25. ROSUVASTATINE [ROSUVASTATIN] [Concomitant]
     Active Substance: ROSUVASTATIN
     Indication: DYSLIPIDAEMIA
     Dosage: 20 MG, ONCE A DAY
     Route: 048
     Dates: start: 201708
  26. REMSIMA [Suspect]
     Active Substance: INFLIXIMAB
     Indication: CROHN^S DISEASE
     Dosage: 450 MG  (WEIGHT: 90)
     Route: 042
     Dates: start: 20170124, end: 20170124
  27. REMSIMA [Suspect]
     Active Substance: INFLIXIMAB
     Dosage: 440 MG (WEIGHT:88)
     Route: 042
     Dates: start: 20180514, end: 20180514
  28. FENOFIBRATE. [Concomitant]
     Active Substance: FENOFIBRATE
     Indication: DYSLIPIDAEMIA
     Dosage: 267 MG, ONCE A DAY
     Route: 048
     Dates: start: 201708

REACTIONS (1)
  - Acute kidney injury [Recovered/Resolved]

NARRATIVE: CASE EVENT DATE: 20190719
